FAERS Safety Report 15681087 (Version 2)
Quarter: 2018Q4

REPORT INFORMATION
  Report Type: Spontaneous
  Country: JP (occurrence: JP)
  Receive Date: 20181203
  Receipt Date: 20181211
  Transmission Date: 20190205
  Serious: Yes (Death, Hospitalization, Other)
  Sender: FDA-Public Use
  Company Number: JP-GLAXOSMITHKLINE-JP2018JPN214836

PATIENT
  Age: 73 Year
  Sex: Male

DRUGS (1)
  1. SAMTIREL [Suspect]
     Active Substance: ATOVAQUONE
     Dosage: UNK, BID
     Route: 048

REACTIONS (2)
  - Physical deconditioning [Fatal]
  - Circulatory collapse [Fatal]
